FAERS Safety Report 6537271-1 (Version None)
Quarter: 2010Q1

REPORT INFORMATION
  Report Type: 
  Country: None (occurrence: None)
  Receive Date: 20100110
  Receipt Date: 20091230
  Transmission Date: 20100710
  Serious: Yes (Other)
  Sender: FDA-Public Use
  Company Number: 232393J09USA

PATIENT
  Age: 29 Year
  Sex: Female
  Weight: 68 kg

DRUGS (14)
  1. REBIF [Suspect]
     Indication: MULTIPLE SCLEROSIS
     Dosage: 44 MCG, 3 IN 1 WEEKS, SUBCUTANEOUS
     Route: 058
     Dates: start: 20080618, end: 20091201
  2. PRILOSEC [Concomitant]
  3. ZOLOFT (DERTRALINE HYDROCHLORIDE) [Concomitant]
  4. EFFEXOR (VENALAFAXINE) [Concomitant]
  5. BUSPAR [Concomitant]
  6. LYRICA [Concomitant]
  7. FLOVENT [Concomitant]
  8. ALBUTEROL [Concomitant]
  9. VITAMIN B12 [Concomitant]
  10. VITAMIN D [Concomitant]
  11. BENEFIBER WITH CALCIUM AND COLACE (CYAMOPSIS TETRAGONOLOBUS GUM) [Concomitant]
  12. ALEVE [Concomitant]
  13. LACTULOSE [Concomitant]
  14. NUVARING [Concomitant]

REACTIONS (5)
  - ABDOMINAL PAIN [None]
  - CONDITION AGGRAVATED [None]
  - GALLBLADDER DISORDER [None]
  - HEPATOBILIARY SCAN ABNORMAL [None]
  - PYREXIA [None]
